FAERS Safety Report 14042511 (Version 2)
Quarter: 2017Q4

REPORT INFORMATION
  Report Type: Spontaneous
  Country: US (occurrence: US)
  Receive Date: 20171004
  Receipt Date: 20171213
  Transmission Date: 20180321
  Serious: No
  Sender: FDA-Public Use
  Company Number: US-GILEAD-2017-0296642

PATIENT
  Age: 48 Year
  Sex: Male
  Weight: 71.25 kg

DRUGS (1)
  1. VEMLIDY [Suspect]
     Active Substance: TENOFOVIR ALAFENAMIDE FUMARATE
     Indication: CHRONIC HEPATITIS B
     Dosage: 25 MG, UNK
     Route: 048
     Dates: start: 20170825

REACTIONS (4)
  - Nasopharyngitis [Unknown]
  - Liver function test increased [Recovered/Resolved]
  - Alanine aminotransferase increased [Recovered/Resolved]
  - Rash [Recovered/Resolved]

NARRATIVE: CASE EVENT DATE: 20170915
